FAERS Safety Report 5715788-7 (Version None)
Quarter: 2008Q2

REPORT INFORMATION
  Report Type: 
  Country: None (occurrence: None)
  Receive Date: 20080422
  Receipt Date: 20080403
  Transmission Date: 20081010
  Serious: No
  Sender: FDA-Public Use
  Company Number: 1819470-2008-00015

PATIENT
  Sex: Female

DRUGS (1)
  1. HUMAPEN ERGO, BURGUNDY/CLEAR [Suspect]
     Indication: INJECTION

REACTIONS (3)
  - DEVICE BREAKAGE [None]
  - DEVICE MALFUNCTION [None]
  - PHARMACEUTICAL PRODUCT COMPLAINT [None]
